FAERS Safety Report 25462495 (Version 1)
Quarter: 2025Q2

REPORT INFORMATION
  Report Type: Spontaneous
  Country: US (occurrence: US)
  Receive Date: 20250620
  Receipt Date: 20250620
  Transmission Date: 20250717
  Serious: Yes (Death, Other)
  Sender: BRISTOL-MYERS SQUIBB COMPANY
  Company Number: US-BRISTOL-MYERS SQUIBB COMPANY-2025-088213

PATIENT
  Age: 74 Year
  Sex: Male
  Weight: 84.37 kg

DRUGS (1)
  1. ONUREG [Suspect]
     Active Substance: AZACITIDINE
     Indication: Chemotherapy
     Dosage: ONCE DAILY FOR 7 DAYS OF A 28 DAY CYCLE
     Route: 048

REACTIONS (1)
  - Death [Fatal]
